FAERS Safety Report 6378631-1 (Version None)
Quarter: 2009Q3

REPORT INFORMATION
  Report Type: 
  Country: None (occurrence: None)
  Receive Date: 20090928
  Receipt Date: 20090922
  Transmission Date: 20100115
  Serious: Yes (Hospitalization, Other)
  Sender: FDA-Public Use
  Company Number: US-AMGEN-QUU364909

PATIENT
  Sex: Male

DRUGS (15)
  1. ARANESP [Suspect]
     Indication: RENAL FAILURE CHRONIC
     Dates: start: 20081101
  2. SENOKOT [Concomitant]
  3. VITAMIN D [Concomitant]
  4. FERROUS SULFATE TAB [Concomitant]
  5. WARFARIN [Concomitant]
  6. SIMVASTATIN [Concomitant]
  7. TORSEMIDE [Concomitant]
  8. COZAAR [Concomitant]
  9. DIGOXIN [Concomitant]
  10. COREG [Concomitant]
  11. PREDNISONE [Concomitant]
  12. MYCOPHENOLATE MOFETIL [Concomitant]
  13. KEPPRA [Concomitant]
  14. ASPIRIN [Concomitant]
  15. BLOOD CELLS, PACKED HUMAN [Concomitant]

REACTIONS (8)
  - ASTHENIA [None]
  - CARDIAC FAILURE CONGESTIVE [None]
  - FATIGUE [None]
  - INJECTION SITE HAEMATOMA [None]
  - INJECTION SITE THROMBOSIS [None]
  - OEDEMA [None]
  - VASODILATATION [None]
  - WEIGHT INCREASED [None]
